FAERS Safety Report 5286896-2 (Version None)
Quarter: 2007Q1

REPORT INFORMATION
  Report Type: 
  Country: None (occurrence: None)
  Receive Date: 20070329
  Receipt Date: 20070321
  Transmission Date: 20070707
  Serious: Yes (Death)
  Sender: FDA-Public Use
  Company Number: 011943

PATIENT
  Age: 44 Year
  Sex: Male

DRUGS (5)
  1. CLARAVIS [Suspect]
     Indication: BRAIN NEOPLASM
     Dosage: 40 MG, BID, ORAL
     Route: 048
     Dates: start: 20060701, end: 20060701
  2. THALIDOMIDE [Concomitant]
  3. TAMOXIFEN CITRATE [Concomitant]
  4. CAMPTOSAR [Concomitant]
  5. NELARABINE [Concomitant]

REACTIONS (2)
  - BRAIN NEOPLASM MALIGNANT [None]
  - MALIGNANT NEOPLASM PROGRESSION [None]
